FAERS Safety Report 8769752 (Version 6)
Quarter: 2014Q2

REPORT INFORMATION
  Report Type: Spontaneous
  Country: US (occurrence: US)
  Receive Date: 20120905
  Receipt Date: 20140424
  Transmission Date: 20141212
  Serious: Yes (Hospitalization, Other)
  Sender: FDA-Public Use
  Company Number: US-009507513-1112USA02417

PATIENT
  Sex: Female
  Weight: 62.59 kg

DRUGS (6)
  1. FOSAMAX [Suspect]
     Indication: OSTEOPOROSIS
     Dosage: 5 MG, QD
     Route: 048
     Dates: start: 19990128
  2. FOSAMAX [Suspect]
     Dosage: 70 MG, QW
     Route: 048
     Dates: end: 2009
  3. CALCIUM (UNSPECIFIED) [Concomitant]
     Dosage: 1500 MG, UNK
  4. VITAMIN D (UNSPECIFIED) [Concomitant]
     Dosage: 2000 IU, UNK
  5. MK-9278 [Concomitant]
     Dosage: UNK UNK, QD
  6. NASONEX [Concomitant]
     Indication: RHINITIS ALLERGIC
     Dosage: UNK, BID
     Route: 045
     Dates: start: 20091118

REACTIONS (69)
  - Drug ineffective [Unknown]
  - Oesophagitis [Not Recovered/Not Resolved]
  - Constipation [Unknown]
  - Diarrhoea [Not Recovered/Not Resolved]
  - Pain in extremity [Unknown]
  - Gastritis [Unknown]
  - Diarrhoea [Recovered/Resolved]
  - Diarrhoea [Unknown]
  - Intramedullary rod insertion [Unknown]
  - Femur fracture [Unknown]
  - Femur fracture [Unknown]
  - Adverse event [Unknown]
  - Carpal tunnel syndrome [Unknown]
  - Essential hypertension [Unknown]
  - Depression [Not Recovered/Not Resolved]
  - Bursitis [Unknown]
  - Synovitis [Unknown]
  - Tenosynovitis [Unknown]
  - Iron deficiency anaemia [Unknown]
  - Osteoarthritis [Unknown]
  - Anxiety [Unknown]
  - Blood triglycerides increased [Unknown]
  - Haemorrhoids [Unknown]
  - Large intestine polyp [Unknown]
  - Diverticulum intestinal [Unknown]
  - Irritable bowel syndrome [Unknown]
  - Diverticulum [Unknown]
  - Stress [Unknown]
  - Blood pressure increased [Recovered/Resolved]
  - Gastrointestinal disorder [Unknown]
  - Bruxism [Unknown]
  - Sleep apnoea syndrome [Unknown]
  - Neuropathy peripheral [Unknown]
  - Muscular weakness [Unknown]
  - Muscle strain [Unknown]
  - Ligament sprain [Unknown]
  - Spinal column stenosis [Unknown]
  - Radiculopathy [Unknown]
  - Bone marrow disorder [Unknown]
  - Electrocardiogram Q wave abnormal [Unknown]
  - Hypokalaemia [Unknown]
  - Intervertebral disc protrusion [Unknown]
  - Impaired healing [Unknown]
  - Cough [Recovering/Resolving]
  - Decreased activity [Unknown]
  - Dyspnoea [Not Recovered/Not Resolved]
  - Polypectomy [Unknown]
  - Dysphonia [Unknown]
  - Weight decreased [Unknown]
  - Pulmonary granuloma [Unknown]
  - Cardiomegaly [Unknown]
  - Osteopenia [Unknown]
  - Conjunctivitis [Unknown]
  - Nasopharyngitis [Unknown]
  - Influenza [Unknown]
  - Groin pain [Unknown]
  - Cervical polyp [Unknown]
  - Vertebral foraminal stenosis [Unknown]
  - Bronchitis [Unknown]
  - Spondylolisthesis [Unknown]
  - Intervertebral disc degeneration [Unknown]
  - Urinary tract infection [Unknown]
  - Hypertonic bladder [Unknown]
  - Urinary incontinence [Unknown]
  - Musculoskeletal pain [Unknown]
  - Arthralgia [Unknown]
  - Back pain [Unknown]
  - Gastrooesophageal reflux disease [Recovering/Resolving]
  - Gastritis [Not Recovered/Not Resolved]
